FAERS Safety Report 8579299-6 (Version None)
Quarter: 2012Q2

REPORT INFORMATION
  Report Type: 
  Country: None (occurrence: None)
  Receive Date: 20120423
  Receipt Date: 20100309
  Transmission Date: 20120825
  Serious: Yes (Hospitalization)
  Sender: FDA-Public Use
  Company Number: PHHY2009US57742

PATIENT
  Age: 90 Year
  Sex: Male
  Weight: 77.1 kg

DRUGS (1)
  1. EXJADE [Suspect]
     Dosage: 1500 MG, QD, ORAL
     Route: 048

REACTIONS (1)
  - DIARRHOEA [None]
